FAERS Safety Report 14655292 (Version 1)
Quarter: 2018Q1

REPORT INFORMATION
  Report Type: Spontaneous
  Country: US (occurrence: US)
  Receive Date: 20180319
  Receipt Date: 20180319
  Transmission Date: 20180509
  Serious: Yes (Other)
  Sender: FDA-Public Use
  Company Number: US-MYLANLABS-2018M1015726

PATIENT
  Sex: Female

DRUGS (1)
  1. SULINDAC TABLETS, USP [Suspect]
     Active Substance: SULINDAC
     Indication: ARTHRITIS
     Dosage: UNK
     Route: 048
     Dates: start: 20180222, end: 20180224

REACTIONS (9)
  - Choking [Recovered/Resolved]
  - Rash [Recovered/Resolved]
  - Swelling [Recovering/Resolving]
  - Chills [Recovered/Resolved]
  - Drug effect decreased [Not Recovered/Not Resolved]
  - Piloerection [Recovered/Resolved]
  - Joint range of motion decreased [Not Recovered/Not Resolved]
  - Dysphagia [Recovered/Resolved]
  - Feeling cold [Recovered/Resolved]

NARRATIVE: CASE EVENT DATE: 20180222
